FAERS Safety Report 7103319-9 (Version None)
Quarter: 2010Q4

REPORT INFORMATION
  Report Type: 
  Country: None (occurrence: None)
  Receive Date: 20101115
  Receipt Date: 20101103
  Transmission Date: 20110411
  Serious: Yes (Hospitalization)
  Sender: FDA-Public Use
  Company Number: US-BAYER-201039748NA

PATIENT
  Age: 52 Year
  Sex: Female

DRUGS (2)
  1. AVELOX [Suspect]
     Indication: PRODUCT USED FOR UNKNOWN INDICATION
     Dosage: TOTAL DAILY DOSE: 400 MG  UNIT DOSE: 400 MG
     Route: 048
     Dates: start: 20101029, end: 20101103
  2. LOVENOX [Concomitant]
     Indication: PULMONARY THROMBOSIS

REACTIONS (3)
  - JOINT RANGE OF MOTION DECREASED [None]
  - TENDERNESS [None]
  - TENDON PAIN [None]
